FAERS Safety Report 17352368 (Version 7)
Quarter: 2021Q1

REPORT INFORMATION
  Report Type: Report from Study
  Country: JP (occurrence: JP)
  Receive Date: 20200130
  Receipt Date: 20210302
  Transmission Date: 20210419
  Serious: Yes (Hospitalization, Other)
  Sender: FDA-Public Use
  Company Number: JP-BRISTOL-MYERS SQUIBB COMPANY-BMS-2020-007322

PATIENT
  Age: 62 Year
  Sex: Male
  Weight: 65.3 kg

DRUGS (14)
  1. AMLODIPINE [Concomitant]
     Active Substance: AMLODIPINE BESYLATE
     Indication: HYPERTENSION
     Dosage: 5 MG, EVERYDAY, AFTER BREAKFAST
     Route: 048
     Dates: start: 199611, end: 20200123
  2. BROTIZOLAM [Concomitant]
     Active Substance: BROTIZOLAM
     Indication: INSOMNIA
     Dosage: 0.25 MG, PRN
     Route: 048
     Dates: start: 20191224, end: 20200817
  3. 5?FLUOROURACIL [Suspect]
     Active Substance: FLUOROURACIL
     Indication: OESOPHAGEAL CARCINOMA
     Dosage: 1,000 MG/M2/DAY, FROM DAY 1 TO DAY 4
     Route: 065
     Dates: start: 20191210
  4. ENALAPRIL MALEATE. [Concomitant]
     Active Substance: ENALAPRIL MALEATE
     Indication: HYPERTENSION
     Dosage: 5 MG, EVERYDAY, AFTER BREAKFAST
     Route: 048
     Dates: start: 199611, end: 20200123
  5. TRICHLORMETHIAZIDE [Concomitant]
     Active Substance: TRICHLORMETHIAZIDE
     Indication: HYPERTENSION
     Dosage: 2 MG, EVERYDAY, AFTER BREAKFAST
     Route: 048
     Dates: start: 201702, end: 20200123
  6. CONTOMIN [CHLORPROMAZINE HYDROCHLORIDE] [Concomitant]
     Indication: HICCUPS
     Dosage: 12.5 MG, PRN
     Route: 048
     Dates: start: 20191211, end: 20200205
  7. PICOSULFATE NA [Concomitant]
     Active Substance: SODIUM PICOSULFATE
     Indication: CONSTIPATION
     Dosage: UNK
     Route: 065
     Dates: start: 20200115, end: 202002
  8. SENNOSIDE A+B [Concomitant]
     Active Substance: SENNOSIDES A AND B
     Indication: CONSTIPATION
     Dosage: 12 MG, PRN
     Route: 048
     Dates: start: 20191212, end: 20200122
  9. ALLOID G [Concomitant]
     Active Substance: SODIUM ALGINATE
     Indication: OESOPHAGITIS
     Dosage: 45 ML, Q8H, BEFORE EACH MEAL
     Route: 048
     Dates: start: 20200106, end: 20200123
  10. NEXIUM [Concomitant]
     Active Substance: ESOMEPRAZOLE MAGNESIUM
     Indication: OESOPHAGITIS
     Dosage: 20 MG, EVERYDAY, AFTER DINNER
     Route: 048
     Dates: start: 20200112, end: 20200123
  11. NIVOLUMAB [Suspect]
     Active Substance: NIVOLUMAB
     Indication: OESOPHAGEAL CARCINOMA
     Dosage: 240 MILLIGRAM, Q2WK
     Route: 041
     Dates: start: 20191210
  12. MAGNESIUM OXIDE. [Concomitant]
     Active Substance: MAGNESIUM OXIDE
     Indication: CONSTIPATION
     Dosage: 660 MG, Q8H, AFTER EACH MEAL
     Route: 048
     Dates: start: 20191212, end: 20200817
  13. CISPLATIN. [Suspect]
     Active Substance: CISPLATIN
     Indication: OESOPHAGEAL CARCINOMA
     Dosage: 75 MILLIGRAM/SQ. METER, QD
     Route: 065
     Dates: start: 20191210
  14. METOCLOPRAMIDE. [Concomitant]
     Active Substance: METOCLOPRAMIDE
     Indication: NAUSEA
     Dosage: 5 MG, PRN
     Route: 048
     Dates: start: 20191215, end: 20200206

REACTIONS (3)
  - Upper gastrointestinal haemorrhage [Recovered/Resolved]
  - Oesophageal ulcer [Recovering/Resolving]
  - Anaemia [Recovered/Resolved]

NARRATIVE: CASE EVENT DATE: 20200106
